FAERS Safety Report 8533249-7 (Version None)
Quarter: 2012Q3

REPORT INFORMATION
  Report Type: 
  Country: None (occurrence: None)
  Receive Date: 20120724
  Receipt Date: 20120717
  Transmission Date: 20120928
  Serious: Yes (Hospitalization)
  Sender: FDA-Public Use
  Company Number: FR-SANOFI-AVENTIS-2012SA050558

PATIENT
  Age: 54 Year
  Sex: Female

DRUGS (1)
  1. PLAVIX [Suspect]
     Dosage: STRENGTH: 75 MG
     Route: 048

REACTIONS (4)
  - COLITIS [None]
  - DIARRHOEA [None]
  - INTESTINAL ISCHAEMIA [None]
  - CONDITION AGGRAVATED [None]
